FAERS Safety Report 23376118 (Version 2)
Quarter: 2024Q1

REPORT INFORMATION
  Report Type: Spontaneous
  Country: US (occurrence: US)
  Receive Date: 20240108
  Receipt Date: 20240118
  Transmission Date: 20240410
  Serious: No
  Sender: FDA-Public Use
  Company Number: US-AMGEN-USASP2024000357

PATIENT
  Age: 70 Year
  Sex: Female
  Weight: 77.642 kg

DRUGS (3)
  1. NPLATE [Suspect]
     Active Substance: ROMIPLOSTIM
     Indication: Immune thrombocytopenia
     Dosage: 73 MICROGRAM (1MCG/KG)
     Route: 058
     Dates: start: 20231031, end: 2023
  2. NPLATE [Suspect]
     Active Substance: ROMIPLOSTIM
     Dosage: 2 MICROGRAM/KILOGRAM
     Route: 058
     Dates: start: 20231107, end: 2023
  3. NPLATE [Suspect]
     Active Substance: ROMIPLOSTIM
     Dosage: 10 MICROGRAM/KILOGRAM (TOTAL OF 768 MCG)
     Route: 058
     Dates: start: 2023, end: 20231226

REACTIONS (1)
  - Drug effect less than expected [Not Recovered/Not Resolved]

NARRATIVE: CASE EVENT DATE: 20231031
